FAERS Safety Report 23823358 (Version 2)
Quarter: 2024Q2

REPORT INFORMATION
  Report Type: Spontaneous
  Country: US (occurrence: US)
  Receive Date: 20240507
  Receipt Date: 20240607
  Transmission Date: 20240716
  Serious: Yes (Hospitalization, Other)
  Sender: FDA-Public Use
  Company Number: US-UCBSA-2024021685

PATIENT
  Age: 66 Year
  Sex: Female

DRUGS (1)
  1. CIMZIA [Suspect]
     Active Substance: CERTOLIZUMAB PEGOL
     Indication: Product used for unknown indication
     Dosage: 200 MILLIGRAM, EV 2 WEEKS(QOW)
     Route: 058
     Dates: start: 2023, end: 202402

REACTIONS (8)
  - Ovarian cancer [Unknown]
  - Tumour excision [Unknown]
  - Matrixectomy [Unknown]
  - Oophorectomy [Unknown]
  - Colectomy [Unknown]
  - Splenectomy [Unknown]
  - Scratch [Unknown]
  - Chemotherapy [Unknown]

NARRATIVE: CASE EVENT DATE: 20240101
